FAERS Safety Report 12130222 (Version 1)
Quarter: 2016Q1

REPORT INFORMATION
  Report Type: Spontaneous
  Country: US (occurrence: None)
  Receive Date: 20160229
  Receipt Date: 20160229
  Transmission Date: 20160526
  Serious: Yes (Other)
  Sender: FDA-Public Use
  Company Number: None

PATIENT
  Age: 63 Year
  Sex: Male
  Weight: 83.92 kg

DRUGS (1)
  1. QUESTRAN [Suspect]
     Active Substance: CHOLESTYRAMINE
     Dosage: 1 PACKET TWICE DAILY TAKEN BY MOUTH
     Route: 048

REACTIONS (1)
  - Tooth fracture [None]

NARRATIVE: CASE EVENT DATE: 20140923
